FAERS Safety Report 7921177-7 (Version None)
Quarter: 2011Q4

REPORT INFORMATION
  Report Type: 
  Country: None (occurrence: None)
  Receive Date: 20111117
  Receipt Date: 20111114
  Transmission Date: 20120403
  Serious: Yes (Hospitalization)
  Sender: FDA-Public Use
  Company Number: FR-ABBOTT-11P-056-0874127-00

PATIENT
  Age: 69 Year
  Sex: Male

DRUGS (4)
  1. OMEPRAZOLE [Concomitant]
     Indication: PRODUCT USED FOR UNKNOWN INDICATION
  2. ACECLOFENAC [Concomitant]
     Indication: PRODUCT USED FOR UNKNOWN INDICATION
  3. DEPAKOTE [Suspect]
     Indication: BIPOLAR DISORDER
     Dosage: GASTRO-RESISTANT TABLET
     Route: 048
     Dates: start: 20020101
  4. ALPRAZOLAM [Concomitant]
     Indication: PRODUCT USED FOR UNKNOWN INDICATION
     Dates: start: 20010101

REACTIONS (9)
  - MEMORY IMPAIRMENT [None]
  - MUSCLE SPASMS [None]
  - TREMOR [None]
  - RASH [None]
  - ANXIETY [None]
  - FALL [None]
  - ATAXIA [None]
  - TENDONITIS [None]
  - ENURESIS [None]
